FAERS Safety Report 4784442-0 (Version None)
Quarter: 2005Q3

REPORT INFORMATION
  Report Type: 
  Country: None (occurrence: None)
  Receive Date: 20050929
  Receipt Date: 20050929
  Transmission Date: 20060218
  Serious: No
  Sender: FDA-Public Use
  Company Number: None

PATIENT
  Age: 10 Month
  Sex: Female
  Weight: 7.1 kg

DRUGS (1)
  1. MIRALAX [Suspect]
     Indication: CONSTIPATION
     Dosage: 1 CAPFUL DAILY PO
     Route: 048
     Dates: start: 20030217, end: 20030620

REACTIONS (15)
  - ANAEMIA [None]
  - ASTHENIA [None]
  - DEHYDRATION [None]
  - FAILURE TO THRIVE [None]
  - FAMILY STRESS [None]
  - GENERAL PHYSICAL HEALTH DETERIORATION [None]
  - LETHARGY [None]
  - NAUSEA [None]
  - NEUTROPENIA [None]
  - PALLOR [None]
  - PYREXIA [None]
  - TOOTH DISCOLOURATION [None]
  - TOOTH HYPOPLASIA [None]
  - VOMITING [None]
  - WEIGHT BELOW NORMAL [None]
